FAERS Safety Report 8517795-8 (Version None)
Quarter: 2012Q3

REPORT INFORMATION
  Report Type: 
  Country: None (occurrence: None)
  Receive Date: 20120712
  Receipt Date: 20120712
  Transmission Date: 20120928
  Serious: Yes (Hospitalization)
  Sender: FDA-Public Use
  Company Number: None

PATIENT
  Age: 26 Year
  Sex: Female
  Weight: 49.8957 kg

DRUGS (1)
  1. VYVANSE [Suspect]
     Indication: ATTENTION DEFICIT/HYPERACTIVITY DISORDER
     Dosage: 1 DAILY
     Dates: start: 20110101, end: 20120529

REACTIONS (4)
  - HALLUCINATION, AUDITORY [None]
  - INAPPROPRIATE AFFECT [None]
  - POLYDIPSIA [None]
  - BINGE EATING [None]
